FAERS Safety Report 17933059 (Version 1)
Quarter: 2020Q2

REPORT INFORMATION
  Report Type: Spontaneous
  Country: CN (occurrence: CN)
  Receive Date: 20200623
  Receipt Date: 20200623
  Transmission Date: 20200714
  Serious: Yes (Life-Threatening, Hospitalization, Other)
  Sender: FDA-Public Use
  Company Number: CN-PFIZER INC-2020239615

PATIENT
  Age: 53 Year
  Sex: Female
  Weight: 60 kg

DRUGS (7)
  1. AMLODIPINE/VALSARTAN [Concomitant]
     Active Substance: AMLODIPINE\VALSARTAN
     Indication: HYPERTENSION
     Dosage: 85 MILLIGRAM, QD
     Route: 048
     Dates: start: 20191103, end: 20191105
  2. COLLOIDAL BISMUTH PECTIN [Concomitant]
     Active Substance: BISMUTH
     Indication: PEPTIC ULCER
     Dosage: 200 MILLIGRAM, BID
     Route: 048
     Dates: start: 20191101, end: 20191106
  3. POLYENE PHOSPHATIDYLCHOLINE [Concomitant]
     Active Substance: PHOSPHOLIPID
     Indication: ENZYME ACTIVITY DECREASED
     Dosage: 10 MILLILITER, QD
     Route: 042
     Dates: start: 20191030, end: 20191105
  4. KLACID [CLARITHROMYCIN] [Concomitant]
     Active Substance: CLARITHROMYCIN
     Indication: PEPTIC ULCER
     Dosage: 0.5 MILLIGRAM, BID
     Route: 048
     Dates: start: 20191101, end: 20191106
  5. SODIUM CHLORIDE. [Concomitant]
     Active Substance: SODIUM CHLORIDE
     Indication: PEPTIC ULCER
     Dosage: 100 MILLILITER, QD
     Route: 041
     Dates: start: 20191030, end: 20191105
  6. AMOXICILLIN. [Concomitant]
     Active Substance: AMOXICILLIN
     Indication: PEPTIC ULCER
     Dosage: 1 GRAM, BID
     Route: 048
     Dates: start: 20191031, end: 20191105
  7. PANTOLOC [Suspect]
     Active Substance: PANTOPRAZOLE SODIUM
     Indication: PEPTIC ULCER
     Dosage: 40 MILLIGRAM, QD
     Route: 041
     Dates: start: 20191030, end: 20191105

REACTIONS (1)
  - Anaphylactic shock [Recovering/Resolving]

NARRATIVE: CASE EVENT DATE: 20191105
